FAERS Safety Report 11457127 (Version 2)
Quarter: 2015Q4

REPORT INFORMATION
  Report Type: Report from Study
  Country: CA (occurrence: CA)
  Receive Date: 20150904
  Receipt Date: 20151006
  Transmission Date: 20160304
  Serious: Yes (Other)
  Sender: FDA-Public Use
  Company Number: CA-ROCHE-1610000

PATIENT
  Age: 61 Year
  Sex: Female

DRUGS (11)
  1. DIAMICRON [Concomitant]
     Active Substance: GLICLAZIDE
  2. METHOTREXATE [Concomitant]
     Active Substance: METHOTREXATE
  3. FOLIC ACID. [Concomitant]
     Active Substance: FOLIC ACID
  4. LISINOPRIL. [Concomitant]
     Active Substance: LISINOPRIL
  5. METFORMIN [Concomitant]
     Active Substance: METFORMIN HYDROCHLORIDE
  6. ATENOLOL. [Concomitant]
     Active Substance: ATENOLOL
  7. ACTEMRA [Suspect]
     Active Substance: TOCILIZUMAB
     Indication: RHEUMATOID ARTHRITIS
     Route: 058
     Dates: start: 20150709
  8. PREDNISONE. [Concomitant]
     Active Substance: PREDNISONE
  9. CRESTOR [Concomitant]
     Active Substance: ROSUVASTATIN CALCIUM
  10. LEFLUNOMIDE. [Concomitant]
     Active Substance: LEFLUNOMIDE
  11. MORPHINE [Concomitant]
     Active Substance: MORPHINE
     Route: 065

REACTIONS (6)
  - Respiratory tract infection [Not Recovered/Not Resolved]
  - Infection [Recovered/Resolved]
  - Cough [Not Recovered/Not Resolved]
  - Asthma [Not Recovered/Not Resolved]
  - Pain in extremity [Unknown]
  - Bone pain [Unknown]

NARRATIVE: CASE EVENT DATE: 20150709
